FAERS Safety Report 9196995 (Version 1)
Quarter: 2013Q1

REPORT INFORMATION
  Report Type: Spontaneous
  Country: US (occurrence: None)
  Receive Date: 20120709
  Receipt Date: 20120709
  Transmission Date: 20140127
  Serious: No
  Sender: FDA-Public Use
  Company Number: 2012HGS-003613

PATIENT
  Age: 24 Year
  Sex: Female
  Weight: 69.85 kg

DRUGS (6)
  1. BENLYSTA [Suspect]
     Dosage: 1 IN 14 D, INTRAVENOUS DRIP
     Dates: start: 20120504
  2. PLAQUENIL ((HYDROXYCHLOROQUINE SULFATE)HYDROXYCHLOROQUINE SULFATE) [Concomitant]
  3. SYNTHROID (LEVOTHYROXINE SODIUM) (LEVOTHYROXINE SODIUM) [Concomitant]
  4. PRILOSEC (OMEPRAZOLE) (OMEPRAZOLE) [Concomitant]
  5. HYDROCHLOROTHIAZIDE (HYDROCHLOROTHIAZIDE) (HYDROCHLOROTHIAZIDE) [Concomitant]
  6. XYZAL (LEVOCETIRIZINE DIHYDROCHLORIDE) (LEVOCETIRIZINE DIHYDROCHLORIDE) [Concomitant]

REACTIONS (3)
  - Hypoaesthesia [None]
  - Paraesthesia [None]
  - Pain in extremity [None]
